FAERS Safety Report 21283740 (Version 1)
Quarter: 2022Q3

REPORT INFORMATION
  Report Type: Spontaneous
  Country: US (occurrence: US)
  Receive Date: 20220901
  Receipt Date: 20220901
  Transmission Date: 20221027
  Serious: No
  Sender: FDA-Public Use
  Company Number: US-ABBVIE-22K-163-4223071-00

PATIENT
  Age: 81 Year
  Sex: Male
  Weight: 63.560 kg

DRUGS (7)
  1. IMBRUVICA [Suspect]
     Active Substance: IBRUTINIB
     Indication: Waldenstrom^s macroglobulinaemia
     Route: 048
     Dates: start: 202105
  2. BACLOFEN [Concomitant]
     Active Substance: BACLOFEN
     Indication: Hiccups
  3. ATIVAN [Concomitant]
     Active Substance: LORAZEPAM
     Indication: Sleep disorder therapy
  4. VITAMIN D [Concomitant]
     Active Substance: VITAMIN D NOS
     Indication: Immune system disorder
  5. TIMOLOL [Concomitant]
     Active Substance: TIMOLOL
     Indication: Open angle glaucoma
  6. LUMIGAN [Concomitant]
     Active Substance: BIMATOPROST
     Indication: Open angle glaucoma
  7. ALBUTEROL\IPRATROPIUM [Concomitant]
     Active Substance: ALBUTEROL\IPRATROPIUM
     Indication: Chronic obstructive pulmonary disease

REACTIONS (5)
  - Oesophageal stenosis [Not Recovered/Not Resolved]
  - Motion sickness [Not Recovered/Not Resolved]
  - Tinnitus [Not Recovered/Not Resolved]
  - Scar [Unknown]
  - Dizziness [Not Recovered/Not Resolved]

NARRATIVE: CASE EVENT DATE: 20210501
